FAERS Safety Report 10478400 (Version 1)
Quarter: 2014Q3

REPORT INFORMATION
  Report Type: Spontaneous
  Country: CH (occurrence: CH)
  Receive Date: 20140926
  Receipt Date: 20140926
  Transmission Date: 20150326
  Serious: Yes (Hospitalization)
  Sender: FDA-Public Use
  Company Number: CH-MYLANLABS-2014M1005290

PATIENT

DRUGS (2)
  1. FENTANYL. [Suspect]
     Active Substance: FENTANYL
     Dosage: INFUSION RATE 2700 MICROG/D
     Route: 037
  2. FENTANYL. [Suspect]
     Active Substance: FENTANYL
     Indication: PAIN
     Dosage: 6 MG/ML; INFUSION RATE 3100 MICROG (0.52 ML) PER DAY
     Route: 037

REACTIONS (4)
  - Dizziness [Recovered/Resolved]
  - Overdose [Recovered/Resolved]
  - Coma [Recovered/Resolved]
  - Device infusion issue [Recovered/Resolved]
